FAERS Safety Report 16572778 (Version 1)
Quarter: 2019Q3

REPORT INFORMATION
  Report Type: Spontaneous
  Country: PT (occurrence: PT)
  Receive Date: 20190715
  Receipt Date: 20190715
  Transmission Date: 20191004
  Serious: Yes (Hospitalization)
  Sender: FDA-Public Use
  Company Number: PT-PURACAP PHARMACEUTICAL LLC-2019EPC00183

PATIENT
  Age: 15 Year
  Sex: Male

DRUGS (2)
  1. IBUPROFEN. [Suspect]
     Active Substance: IBUPROFEN
     Indication: FOOT FRACTURE
     Route: 065
  2. IBUPROFEN. [Suspect]
     Active Substance: IBUPROFEN
     Dosage: 400 MG, ONCE
     Route: 065

REACTIONS (1)
  - Meningitis aseptic [Recovered/Resolved]
